FAERS Safety Report 10681158 (Version 14)
Quarter: 2015Q4

REPORT INFORMATION
  Report Type: Report from Study
  Country: DE (occurrence: DE)
  Receive Date: 20141229
  Receipt Date: 20151103
  Transmission Date: 20160304
  Serious: Yes (Hospitalization)
  Sender: FDA-Public Use
  Company Number: DE-MERCK-1412DEU010216

PATIENT
  Age: 69 Year
  Sex: Male
  Weight: 71 kg

DRUGS (10)
  1. PEMBROLIZUMAB. [Suspect]
     Active Substance: PEMBROLIZUMAB
     Dosage: 10 MG/KG, Q2W
     Route: 042
     Dates: start: 20141125, end: 20141125
  2. ENALAPRIL MALEATE. [Concomitant]
     Active Substance: ENALAPRIL MALEATE
     Indication: ARTERIOSCLEROSIS
     Dosage: TOTAL DAILY DOSE: 15 MG, BID
     Route: 048
     Dates: start: 200601
  3. L-THYROXIN [Concomitant]
     Active Substance: LEVOTHYROXINE SODIUM
     Indication: HYPOTHYROIDISM
     Dosage: 125.0 MICROGRAM, QD
     Route: 048
     Dates: start: 20140410, end: 20150205
  4. PEMBROLIZUMAB. [Suspect]
     Active Substance: PEMBROLIZUMAB
     Indication: MALIGNANT MELANOMA
     Dosage: 10 MG/KG, Q2W
     Route: 042
     Dates: start: 20140116, end: 20141106
  5. SIMVASTATIN. [Concomitant]
     Active Substance: SIMVASTATIN
     Indication: CARDIOVASCULAR DISORDER
     Dosage: 40 MG, QD
     Route: 048
     Dates: start: 200601
  6. ASS 100 [Concomitant]
     Active Substance: ASPIRIN
     Indication: SURGERY
     Dosage: 100 MG, QD
     Route: 048
     Dates: start: 200601
  7. METOPROLOL [Concomitant]
     Active Substance: METOPROLOL
     Indication: ARTERIOSCLEROSIS
     Dosage: 95 MG, QD
     Route: 048
     Dates: start: 200601
  8. PEMBROLIZUMAB. [Suspect]
     Active Substance: PEMBROLIZUMAB
     Dosage: 10 MG/KG, Q2W
     Route: 042
     Dates: start: 20150205
  9. TORSEMIDE. [Concomitant]
     Active Substance: TORSEMIDE
     Indication: OEDEMA
     Dosage: 10 MG, QD
     Route: 048
     Dates: start: 20140603
  10. IBUPROFEN. [Concomitant]
     Active Substance: IBUPROFEN
     Indication: ARTHRALGIA
     Dosage: TOTAL DAILY DOSE 600 MG, PRN
     Route: 048
     Dates: start: 20140401

REACTIONS (1)
  - Hepatitis [Recovered/Resolved]

NARRATIVE: CASE EVENT DATE: 20141218
